FAERS Safety Report 12219636 (Version 1)
Quarter: 2016Q1

REPORT INFORMATION
  Report Type: Report from Study
  Country: US (occurrence: US)
  Receive Date: 20160330
  Receipt Date: 20160330
  Transmission Date: 20160526
  Serious: No
  Sender: FDA-Public Use
  Company Number: PHEH2013US021034

PATIENT
  Age: 9 Year
  Sex: Male

DRUGS (5)
  1. RAPAMUNE [Concomitant]
     Active Substance: SIROLIMUS
     Indication: PRODUCT USED FOR UNKNOWN INDICATION
     Dosage: UNK UKN, UNK
     Route: 065
  2. KEPPRA [Concomitant]
     Active Substance: LEVETIRACETAM
     Indication: PRODUCT USED FOR UNKNOWN INDICATION
     Dosage: UNK UKN, PRN
     Route: 065
  3. AFINITOR [Suspect]
     Active Substance: EVEROLIMUS
     Indication: BRAIN NEOPLASM BENIGN
     Dosage: 7.5 MG, QD
     Route: 048
     Dates: start: 20120126
  4. IMITREX [Concomitant]
     Active Substance: SUMATRIPTAN SUCCINATE
     Indication: PRODUCT USED FOR UNKNOWN INDICATION
     Dosage: UNK UKN, PRN
     Route: 065
  5. DIASTAT [Concomitant]
     Active Substance: DIAZEPAM
     Indication: PRODUCT USED FOR UNKNOWN INDICATION
     Dosage: UNK UKN, PRN
     Route: 065

REACTIONS (9)
  - Vomiting [Recovered/Resolved]
  - Anxiety [Recovered/Resolved]
  - Dry skin [Unknown]
  - Rash pustular [Recovering/Resolving]
  - Body temperature increased [Recovered/Resolved]
  - Nervousness [Recovered/Resolved]
  - Rash [Not Recovered/Not Resolved]
  - Rhinorrhoea [Unknown]
  - Skin disorder [Unknown]

NARRATIVE: CASE EVENT DATE: 20131004
